FAERS Safety Report 23103941 (Version 3)
Quarter: 2023Q4

REPORT INFORMATION
  Report Type: Report from Study
  Country: US (occurrence: US)
  Receive Date: 20231025
  Receipt Date: 20231121
  Transmission Date: 20240110
  Serious: Yes (Other)
  Sender: FDA-Public Use
  Company Number: US-UCBSA-2022062230

PATIENT
  Age: 13 Year
  Sex: Female

DRUGS (15)
  1. FINTEPLA [Suspect]
     Active Substance: FENFLURAMINE
     Indication: Severe myoclonic epilepsy of infancy
     Dosage: 4.6 MILLILITER, 2X/DAY (BID)
     Dates: start: 20220929
  2. FINTEPLA [Suspect]
     Active Substance: FENFLURAMINE
     Indication: Partial seizures
     Dosage: 1 ML MORNING, 1ML AFTERNOON AND 2 ML NIGHT
  3. FINTEPLA [Suspect]
     Active Substance: FENFLURAMINE
     Indication: Off label use
     Dosage: 1 ML QAM, 1ML AFTERNOON AND 2 ML QPM
  4. FINTEPLA [Suspect]
     Active Substance: FENFLURAMINE
     Dosage: 2 ML QAM, 1 ML IN AFTERNOON, + 2 ML QPM
  5. FINTEPLA [Suspect]
     Active Substance: FENFLURAMINE
     Dosage: 2 ML QAM, 1 ML IN AFTERNOON, + 2 ML QPM
     Dates: start: 20220929
  6. FINTEPLA [Suspect]
     Active Substance: FENFLURAMINE
     Dosage: 2 ML AM, 1 ML IN AFTERNOON, + 2 ML EVENING
  7. FINTEPLA [Suspect]
     Active Substance: FENFLURAMINE
     Dosage: 2 MILLILITER, 3X/DAY (TID)
  8. FINTEPLA [Suspect]
     Active Substance: FENFLURAMINE
     Dosage: 1.5 ML AM, 2 ML IN AFTERNOON, + 2 ML EVENING
  9. FINTEPLA [Suspect]
     Active Substance: FENFLURAMINE
     Dosage: 1.5 ML  IN AM. 2 ML IN AFTERNOON, 2 ML PM
  10. FINTEPLA [Suspect]
     Active Substance: FENFLURAMINE
     Dosage: 1.5 ML IN AM. 2 ML IN AFTERNOON, 2 ML PM/ 3X/DAY (TID)
     Route: 048
     Dates: start: 20220927
  11. FINTEPLA [Suspect]
     Active Substance: FENFLURAMINE
     Dosage: 2.5 MILLILITER, 3X/DAY (TID)
     Dates: start: 20220929
  12. FINTEPLA [Suspect]
     Active Substance: FENFLURAMINE
     Dosage: 2 MILLILITER, 3X/DAY (TID)
  13. FINTEPLA [Suspect]
     Active Substance: FENFLURAMINE
     Dosage: 2 ML QAM, 2 ML IN THE AFTERNOON, 2 ML QPM , 3X/DAY (TID)
  14. FINTEPLA [Suspect]
     Active Substance: FENFLURAMINE
     Dosage: 2ML IN THE MORNING. 2ML IN THE AFTERNOON, AND 2.5ML AT NIGHT
  15. FINTEPLA [Suspect]
     Active Substance: FENFLURAMINE
     Dosage: 2.5 ML QAM, 2 ML IN THE AFTERNOON, + 2.5 ML QPM

REACTIONS (15)
  - Seizure [Not Recovered/Not Resolved]
  - Muscular weakness [Not Recovered/Not Resolved]
  - Fatigue [Not Recovered/Not Resolved]
  - Influenza [Recovered/Resolved]
  - Drooling [Recovered/Resolved]
  - Gait disturbance [Not Recovered/Not Resolved]
  - Contusion [Not Recovered/Not Resolved]
  - Decreased appetite [Not Recovered/Not Resolved]
  - Asthenia [Not Recovered/Not Resolved]
  - Sedation [Recovered/Resolved]
  - Speech disorder [Not Recovered/Not Resolved]
  - Anger [Not Recovered/Not Resolved]
  - Aggression [Not Recovered/Not Resolved]
  - Lethargy [Not Recovered/Not Resolved]
  - Off label use [Unknown]

NARRATIVE: CASE EVENT DATE: 20221005
